FAERS Safety Report 17815758 (Version 1)
Quarter: 2020Q2

REPORT INFORMATION
  Report Type: Spontaneous
  Country: FR (occurrence: FR)
  Receive Date: 20200522
  Receipt Date: 20200522
  Transmission Date: 20200714
  Serious: Yes (Other)
  Sender: FDA-Public Use
  Company Number: FR-AXELLIA-003155

PATIENT
  Age: 8 Year
  Sex: Male
  Weight: 26.8 kg

DRUGS (7)
  1. CYTARABINE EBEWE [Suspect]
     Active Substance: CYTARABINE
     Indication: ACUTE MYELOID LEUKAEMIA
     Dosage: 26/03, 29/03, 01/04, 08/04, 15/04 ET 22/04
     Route: 037
     Dates: start: 20200326, end: 20200422
  2. VANCOMYCIN [Suspect]
     Active Substance: VANCOMYCIN
     Indication: INFECTION
     Route: 042
     Dates: start: 20200410, end: 20200416
  3. ONDANSETRON ACCORD [Suspect]
     Active Substance: ONDANSETRON
     Indication: PROPHYLAXIS OF NAUSEA AND VOMITING
     Route: 048
     Dates: start: 20200402, end: 20200425
  4. METHOTREXATE. [Suspect]
     Active Substance: METHOTREXATE
     Indication: ACUTE MYELOID LEUKAEMIA
     Dosage: 26/03, 29/03, 01/04, 08/04, ET 15/04
     Route: 037
     Dates: start: 20200326, end: 20200415
  5. CYTARABINE EBEWE [Suspect]
     Active Substance: CYTARABINE
     Indication: ACUTE MYELOID LEUKAEMIA
     Dosage: CONTINUOUSLY
     Route: 042
     Dates: start: 20200402, end: 20200406
  6. MYLOTARG [Suspect]
     Active Substance: GEMTUZUMAB OZOGAMICIN
     Indication: ACUTE MYELOID LEUKAEMIA
     Dosage: STRENGTH:5 MG
     Route: 042
     Dates: start: 20200407, end: 20200407
  7. IMIPENEM [Suspect]
     Active Substance: IMIPENEM
     Indication: INFECTION
     Route: 042
     Dates: start: 20200413, end: 20200420

REACTIONS (1)
  - Pancreatitis [Recovering/Resolving]

NARRATIVE: CASE EVENT DATE: 20200420
